FAERS Safety Report 9425819 (Version 1)
Quarter: 2013Q3

REPORT INFORMATION
  Report Type: Report from Study
  Country: US (occurrence: US)
  Receive Date: 20130729
  Receipt Date: 20130729
  Transmission Date: 20140515
  Serious: Yes (Hospitalization)
  Sender: FDA-Public Use
  Company Number: US-ABBOTT-13P-163-1122943-00

PATIENT
  Age: 41 Year
  Sex: Female
  Weight: 77.18 kg

DRUGS (12)
  1. LUPRON DEPOT [Suspect]
     Indication: MENORRHAGIA
     Route: 030
     Dates: start: 20130424
  2. HUMALOG [Concomitant]
     Indication: DIABETES MELLITUS
  3. LANTUS [Concomitant]
     Indication: DIABETES MELLITUS
  4. METOLAZONE [Concomitant]
     Indication: FLUID RETENTION
  5. METOPROLOL [Concomitant]
     Indication: CARDIAC DISORDER
  6. PRAVASTATIN [Concomitant]
     Indication: BLOOD CHOLESTEROL INCREASED
  7. TORSEMIDE [Concomitant]
     Indication: CARDIAC DISORDER
  8. SPIRONOLACTON [Concomitant]
     Indication: FLUID RETENTION
  9. PLAVIX [Concomitant]
     Indication: CARDIAC DISORDER
  10. GABAPENTIN [Concomitant]
     Indication: NEUROPATHY PERIPHERAL
  11. PRILOSEC [Concomitant]
     Indication: GASTROOESOPHAGEAL REFLUX DISEASE
  12. LISINOPRIL [Concomitant]
     Indication: PRODUCT USED FOR UNKNOWN INDICATION

REACTIONS (3)
  - Renal failure acute [Not Recovered/Not Resolved]
  - Dehydration [Not Recovered/Not Resolved]
  - Dysmenorrhoea [Not Recovered/Not Resolved]
